FAERS Safety Report 7774452-3 (Version None)
Quarter: 2011Q3

REPORT INFORMATION
  Report Type: 
  Country: None (occurrence: None)
  Receive Date: 20110921
  Receipt Date: 20110719
  Transmission Date: 20111222
  Serious: Yes (Hospitalization)
  Sender: FDA-Public Use
  Company Number: UTC-008699

PATIENT
  Age: 55 Year
  Sex: Female
  Weight: 177.2 kg

DRUGS (7)
  1. TRACLEER [Concomitant]
  2. TYVASO [Suspect]
     Indication: PULMONARY HYPERTENSION
     Dosage: 72 MCG (18 MCG, 4 IN 1 D), INHALATION
     Route: 055
     Dates: start: 20100915, end: 20110701
  3. TYVASO [Suspect]
     Indication: PULMONARY HYPERTENSION
     Dosage: 72 MCG (18 MCG, 4 IN 1 D), INHALATION
     Route: 055
     Dates: start: 20110713
  4. DIURETICS (DIURETICS) [Concomitant]
  5. DIGOXIN [Concomitant]
  6. OXYGEN (OXYGEN) [Concomitant]
  7. ADCIRCA [Concomitant]

REACTIONS (2)
  - THROAT IRRITATION [None]
  - PNEUMONIA [None]
